FAERS Safety Report 9640422 (Version 1)
Quarter: 2013Q4

REPORT INFORMATION
  Report Type: Spontaneous
  Country: US (occurrence: None)
  Receive Date: 20131022
  Receipt Date: 20131022
  Transmission Date: 20140711
  Serious: No
  Sender: FDA-Public Use
  Company Number: None

PATIENT
  Age: 74 Year
  Sex: Female
  Weight: 72.58 kg

DRUGS (8)
  1. TERAZOSIN [Suspect]
     Indication: HYPERTENSION
     Dosage: 5 MG 1 PILL AT BEDTIME 1 DAILY CAPSULE BY MOUTH
     Route: 048
     Dates: start: 20120826, end: 20130830
  2. CLONIDINE [Concomitant]
  3. FELECAINIDE [Concomitant]
  4. NATEGLINDE [Concomitant]
  5. HYDROCHLOROTHIAZINE [Concomitant]
  6. SIMVASTATIN [Concomitant]
  7. LEVOTHYROXIN [Concomitant]
  8. ASPIRIN [Concomitant]

REACTIONS (3)
  - Palpitations [None]
  - Blood pressure increased [None]
  - Heart rate increased [None]
